FAERS Safety Report 8713216 (Version 2)
Quarter: 2012Q4

REPORT INFORMATION
  Report Type: Report from Study
  Country: TH (occurrence: TH)
  Receive Date: 20120808
  Receipt Date: 20120917
  Transmission Date: 20130627
  Serious: Yes (Hospitalization, Other)
  Sender: FDA-Public Use
  Company Number: TH-ROCHE-1094707

PATIENT
  Age: 47 Year
  Sex: Female

DRUGS (4)
  1. PEGASYS [Suspect]
     Indication: HEPATITIS C
     Route: 058
     Dates: start: 20111229, end: 20120809
  2. COPEGUS [Suspect]
     Indication: HEPATITIS C
     Route: 048
     Dates: start: 20111229, end: 20120814
  3. COPEGUS [Suspect]
     Route: 048
     Dates: start: 20120726
  4. ALISPORIVIR [Suspect]
     Indication: HEPATITIS C
     Dosage: soft gelatin capsule
     Route: 048
     Dates: start: 20111229, end: 20120417

REACTIONS (2)
  - Brain mass [Unknown]
  - Cervix carcinoma [Unknown]
